FAERS Safety Report 6595614-7 (Version None)
Quarter: 2010Q1

REPORT INFORMATION
  Report Type: 
  Country: None (occurrence: None)
  Receive Date: 20100222
  Receipt Date: 20100222
  Transmission Date: 20100710
  Serious: Yes (Death)
  Sender: FDA-Public Use
  Company Number: None

PATIENT
  Age: 83 Year
  Sex: Female
  Weight: 78 kg

DRUGS (3)
  1. METOLAZONE [Suspect]
     Indication: ACUTE PRERENAL FAILURE
     Dosage: 2.5MG BID PEG 8/23
     Dates: start: 20090823
  2. METOLAZONE [Suspect]
     Indication: OEDEMA
     Dosage: 2.5MG X 1 PEG 10/20
     Dates: start: 20091020
  3. METOLAZONE [Suspect]
     Indication: GENERALISED OEDEMA
     Dosage: 2.5MG X1 PEG 10/21
     Dates: start: 20091021

REACTIONS (1)
  - AGRANULOCYTOSIS [None]
